FAERS Safety Report 16263342 (Version 1)
Quarter: 2019Q2

REPORT INFORMATION
  Report Type: Spontaneous
  Country: GB (occurrence: GB)
  Receive Date: 20190502
  Receipt Date: 20190502
  Transmission Date: 20190711
  Serious: Yes (Other)
  Sender: FDA-Public Use
  Company Number: GB-TEVA-2019-GB-1044567

PATIENT
  Age: 81 Year
  Sex: Female
  Weight: 75 kg

DRUGS (3)
  1. LANSOPRAZOLE. [Concomitant]
     Active Substance: LANSOPRAZOLE
  2. CELECOXIB. [Suspect]
     Active Substance: CELECOXIB
     Indication: MUSCULOSKELETAL PAIN
     Dosage: 200 MILLIGRAM DAILY;
     Route: 048
     Dates: start: 20190206, end: 20190220
  3. AMITRIPTYLINE [Concomitant]
     Active Substance: AMITRIPTYLINE

REACTIONS (4)
  - Rash pruritic [Unknown]
  - Immune thrombocytopenic purpura [Unknown]
  - Contusion [Unknown]
  - Skin warm [Unknown]

NARRATIVE: CASE EVENT DATE: 20190301
